FAERS Safety Report 9133076 (Version 1)
Quarter: 2013Q1

REPORT INFORMATION
  Report Type: Spontaneous
  Country: US (occurrence: US)
  Receive Date: 20130301
  Receipt Date: 20130301
  Transmission Date: 20140127
  Serious: No
  Sender: FDA-Public Use
  Company Number: US-009507513-1302USA012295

PATIENT
  Sex: Female

DRUGS (3)
  1. HYZAAR [Suspect]
     Dosage: 50 MG, QD
     Route: 048
  2. COZAAR [Suspect]
     Dosage: 50 MG, QD
     Route: 048
  3. COZAAR [Suspect]
     Dosage: 100 MG, UNK
     Route: 048

REACTIONS (3)
  - Hypertension [Unknown]
  - Blood potassium increased [Unknown]
  - Visual impairment [Unknown]
